FAERS Safety Report 6402665-1 (Version None)
Quarter: 2009Q4

REPORT INFORMATION
  Report Type: 
  Country: None (occurrence: None)
  Receive Date: 20091009
  Receipt Date: 20090930
  Transmission Date: 20100525
  Serious: Yes (Death)
  Sender: FDA-Public Use
  Company Number: ADR34302009

PATIENT
  Age: 83 Year
  Sex: Female

DRUGS (2)
  1. CIPROFLOXACIN [Suspect]
     Indication: URINARY TRACT INFECTION
     Dosage: 500 MG, ORAL
     Route: 048
     Dates: start: 20070322, end: 20070331
  2. CEFTAZIDIME [Concomitant]

REACTIONS (2)
  - CLOSTRIDIUM DIFFICILE COLITIS [None]
  - URINARY TRACT INFECTION [None]
